FAERS Safety Report 25122683 (Version 1)
Quarter: 2025Q1

REPORT INFORMATION
  Report Type: Spontaneous
  Country: US (occurrence: US)
  Receive Date: 20250326
  Receipt Date: 20250326
  Transmission Date: 20250409
  Serious: No
  Sender: MACLEODS
  Company Number: US-MACLEODS PHARMA-MAC2025052271

PATIENT

DRUGS (2)
  1. OLANZAPINE [Suspect]
     Active Substance: OLANZAPINE
     Indication: Bipolar disorder
     Route: 065
  2. Gabapentin/Lithium [Concomitant]
     Indication: Bipolar disorder
     Route: 065

REACTIONS (2)
  - Sleep disorder [Unknown]
  - Limb discomfort [Unknown]
